FAERS Safety Report 8928888 (Version 1)
Quarter: 2012Q4

REPORT INFORMATION
  Report Type: Spontaneous
  Country: DK (occurrence: None)
  Receive Date: 20121120
  Receipt Date: 20121120
  Transmission Date: 20130627
  Serious: Yes (Other)
  Sender: FDA-Public Use
  Company Number: 2012MA013407

PATIENT
  Age: 68 Year
  Sex: Male

DRUGS (1)
  1. MIRTAZAPINE TABLETS [Suspect]
     Indication: DEPRESSION
     Route: 048
     Dates: start: 20120415, end: 20120930

REACTIONS (3)
  - Depression [None]
  - Aggression [None]
  - Appetite disorder [None]
